FAERS Safety Report 8152144-9 (Version None)
Quarter: 2012Q1

REPORT INFORMATION
  Report Type: 
  Country: None (occurrence: None)
  Receive Date: 20120214
  Receipt Date: 20120131
  Transmission Date: 20120608
  Serious: Yes (Hospitalization, Other)
  Sender: FDA-Public Use
  Company Number: NSR_00489_2012

PATIENT
  Age: 58 Year
  Sex: Female

DRUGS (9)
  1. TRASTUZUMAB [Concomitant]
  2. OXAZEPAM [Concomitant]
  3. CYCLOPHOSPHAMIDE [Concomitant]
  4. FLUOROURACIL [Concomitant]
  5. TEMAZEPAM [Concomitant]
  6. METOCLOPRAMIDE [Suspect]
     Indication: NAUSEA
     Dosage: 20 MG TOOK ON A REGULAR BASIS 2-4 TIMES A DAY
  7. METOCLOPRAMIDE [Suspect]
     Indication: VOMITING
     Dosage: 20 MG TOOK ON A REGULAR BASIS 2-4 TIMES A DAY
  8. METHOTREXATE [Concomitant]
  9. BENZODIAZEPINE RELATED DRUGS [Concomitant]

REACTIONS (13)
  - AGITATION [None]
  - SUICIDAL IDEATION [None]
  - RESTLESSNESS [None]
  - AKATHISIA [None]
  - DYSPHORIA [None]
  - ANXIETY [None]
  - MOVEMENT DISORDER [None]
  - ABNORMAL BEHAVIOUR [None]
  - INAPPROPRIATE SCHEDULE OF DRUG ADMINISTRATION [None]
  - INSOMNIA [None]
  - HYPERVENTILATION [None]
  - MENTAL DISORDER [None]
  - DEPENDENT PERSONALITY DISORDER [None]
